FAERS Safety Report 11105467 (Version 3)
Quarter: 2015Q2

REPORT INFORMATION
  Report Type: Spontaneous
  Country: JP (occurrence: JP)
  Receive Date: 20150512
  Receipt Date: 20150619
  Transmission Date: 20150821
  Serious: Yes (Life-Threatening, Hospitalization, Other)
  Sender: FDA-Public Use
  Company Number: JP-PFIZER INC-2015158560

PATIENT
  Age: 68 Year
  Sex: Male

DRUGS (11)
  1. SEIBULE [Suspect]
     Active Substance: MIGLITOL
     Indication: TYPE 2 DIABETES MELLITUS
     Dosage: 150 MG, DAILY
     Route: 048
     Dates: start: 20140422
  2. TAKEPRON [Concomitant]
     Active Substance: LANSOPRAZOLE
     Dosage: UNK
     Dates: start: 20141027
  3. SUINY [Suspect]
     Active Substance: ANAGLIPTIN
     Indication: TYPE 2 DIABETES MELLITUS
     Dosage: 200 MG, 2X/DAY
     Route: 048
     Dates: start: 20140422
  4. LIPIDIL [Concomitant]
     Active Substance: FENOFIBRATE
     Dosage: 80 MG, DAILY
     Dates: start: 20131001, end: 20141001
  5. CRESTOR [Concomitant]
     Active Substance: ROSUVASTATIN CALCIUM
     Dosage: UNK
     Dates: start: 20141002
  6. AZILSARTAN [Concomitant]
     Active Substance: AZILSARTAN KAMEDOXOMIL
     Dosage: UNK
     Dates: start: 20121112
  7. BAYASPIRIN [Concomitant]
     Active Substance: ASPIRIN
     Dosage: UNK
     Dates: start: 20141027
  8. LIPIDIL [Concomitant]
     Active Substance: FENOFIBRATE
     Dosage: 160 MG, DAILY
  9. FEBUXOSTAT. [Concomitant]
     Active Substance: FEBUXOSTAT
     Dosage: UNK
     Dates: start: 20130325
  10. ZETIA [Concomitant]
     Active Substance: EZETIMIBE
     Dosage: UNK
  11. TAKELDA [Concomitant]
     Dosage: UNK

REACTIONS (2)
  - Myocardial infarction [Recovered/Resolved]
  - Blood triglycerides increased [Not Recovered/Not Resolved]

NARRATIVE: CASE EVENT DATE: 20140926
